FAERS Safety Report 9263454 (Version 2)
Quarter: 2013Q3

REPORT INFORMATION
  Report Type: Report from Study
  Country: JP (occurrence: JP)
  Receive Date: 20130430
  Receipt Date: 20130711
  Transmission Date: 20140515
  Serious: Yes (Death, Hospitalization)
  Sender: FDA-Public Use
  Company Number: JP-ABBOTT-13X-087-1082403-00

PATIENT
  Age: 75 Year
  Sex: Male

DRUGS (11)
  1. LIPACREON [Suspect]
     Indication: PANCREATIC INSUFFICIENCY
     Route: 048
     Dates: start: 20130223, end: 20130309
  2. LANSOPRAZOLE [Concomitant]
     Indication: GASTROOESOPHAGEAL REFLUX DISEASE
     Route: 048
     Dates: end: 20130309
  3. CAMOSTAT MESILATE [Concomitant]
     Indication: PANCREATIC INSUFFICIENCY
     Route: 048
     Dates: end: 20130309
  4. ASPIRIN [Concomitant]
     Indication: THROMBOSIS PROPHYLAXIS
     Route: 048
     Dates: end: 20130309
  5. TICLOPIDINE HYDROCHLORIDE [Concomitant]
     Indication: ARTERIAL OCCLUSIVE DISEASE
     Route: 048
     Dates: end: 20130309
  6. CARVEDILOL [Concomitant]
     Indication: HYPERTENSION
     Route: 048
     Dates: end: 20130309
  7. WARFARIN POTASSIUM [Concomitant]
     Indication: THROMBOSIS PROPHYLAXIS
     Route: 048
     Dates: end: 20130309
  8. SODIUM CITRATE [Concomitant]
     Indication: IRON DEFICIENCY ANAEMIA
     Route: 048
     Dates: end: 20130309
  9. BROMHEXINE HYDROCHLORIDE [Concomitant]
     Indication: EMPHYSEMA
     Route: 048
     Dates: end: 20130309
  10. ETIZOLAM [Concomitant]
     Indication: SLEEP DISORDER THERAPY
     Route: 048
     Dates: end: 20130309
  11. SENNOSIDE [Concomitant]
     Indication: CONSTIPATION
     Route: 048
     Dates: end: 20130309

REACTIONS (1)
  - Mesenteric artery embolism [Fatal]
